FAERS Safety Report 14452928 (Version 1)
Quarter: 2018Q1

REPORT INFORMATION
  Report Type: Spontaneous
  Country: US (occurrence: US)
  Receive Date: 20180129
  Receipt Date: 20180129
  Transmission Date: 20180509
  Serious: No
  Sender: FDA-Public Use
  Company Number: US-TEVA-744823ACC

PATIENT
  Sex: Male

DRUGS (4)
  1. METOPROLOL. [Suspect]
     Active Substance: METOPROLOL
  2. NORTHERA [Suspect]
     Active Substance: DROXIDOPA
     Dosage: 300 MG TID OR 300 MG BID
     Dates: start: 20161215
  3. DIOVAN [Concomitant]
     Active Substance: VALSARTAN
  4. METOPROLOL. [Suspect]
     Active Substance: METOPROLOL

REACTIONS (4)
  - Blood pressure systolic increased [Unknown]
  - Hypotension [Unknown]
  - Fall [Unknown]
  - Dizziness [Unknown]
